FAERS Safety Report 24955082 (Version 1)
Quarter: 2025Q1

REPORT INFORMATION
  Report Type: Spontaneous
  Country: US (occurrence: None)
  Receive Date: 20250210
  Receipt Date: 20250210
  Transmission Date: 20250409
  Serious: Yes (Hospitalization)
  Sender: FDA-CTU
  Company Number: None

PATIENT
  Age: 58 Year
  Sex: Male
  Weight: 101.25 kg

DRUGS (7)
  1. EPCLUSA [Suspect]
     Active Substance: SOFOSBUVIR\VELPATASVIR
     Indication: Hepatitis C
     Dosage: FREQUENCY : DAILY;?
     Route: 048
     Dates: start: 20250117, end: 20250206
  2. FEBUXOSTAT [Suspect]
     Active Substance: FEBUXOSTAT
  3. LISINOPRIL [Concomitant]
     Active Substance: LISINOPRIL
  4. VITAMINS [Concomitant]
     Active Substance: VITAMINS
  5. OMEPRAZOLE [Concomitant]
     Active Substance: OMEPRAZOLE
  6. ondansetron 8mg tablet [Concomitant]
  7. ATORVASTATIN [Concomitant]
     Active Substance: ATORVASTATIN

REACTIONS (18)
  - Confusional state [None]
  - Disorientation [None]
  - Chest pain [None]
  - Hyperhidrosis [None]
  - Syncope [None]
  - Dehydration [None]
  - Dysgeusia [None]
  - Headache [None]
  - Loss of consciousness [None]
  - Irritability [None]
  - Nonspecific reaction [None]
  - Vision blurred [None]
  - Fatigue [None]
  - Heart rate decreased [None]
  - Pruritus [None]
  - Gout [None]
  - Abdominal pain upper [None]
  - Chromaturia [None]

NARRATIVE: CASE EVENT DATE: 20250205
